FAERS Safety Report 7503558-9 (Version None)
Quarter: 2011Q2

REPORT INFORMATION
  Report Type: 
  Country: None (occurrence: None)
  Receive Date: 20110525
  Receipt Date: 20110516
  Transmission Date: 20111010
  Serious: Yes (Disabling, Other)
  Sender: FDA-Public Use
  Company Number: FR-BAYER-2011-031986

PATIENT
  Age: 40 Year
  Sex: Male
  Weight: 80 kg

DRUGS (1)
  1. CIPROFLOXACIN [Suspect]
     Dosage: DAILY DOSE 1000 MG
     Dates: start: 20110201

REACTIONS (3)
  - ARTHRALGIA [None]
  - TENDONITIS [None]
  - MYOSITIS [None]
